FAERS Safety Report 15244999 (Version 2)
Quarter: 2018Q3

REPORT INFORMATION
  Report Type: Spontaneous
  Country: US (occurrence: US)
  Receive Date: 20180806
  Receipt Date: 20180817
  Transmission Date: 20181010
  Serious: Yes (Other)
  Sender: FDA-Public Use
  Company Number: US-FRESENIUS KABI-FK201808511

PATIENT
  Age: 14 Year
  Sex: Female

DRUGS (6)
  1. SODIUM CHLORIDE (MANUFACTURER UNKNOWN) [Suspect]
     Active Substance: SODIUM CHLORIDE
     Indication: HYPERGLYCAEMIC HYPEROSMOLAR NONKETOTIC SYNDROME
     Dosage: 6L BOLUS IN 4HOURS
     Route: 042
  2. SODIUM CHLORIDE (MANUFACTURER UNKNOWN) [Suspect]
     Active Substance: SODIUM CHLORIDE
     Indication: DIABETIC KETOACIDOSIS
     Dosage: 2L NORMAL SALINE BOLUS
     Route: 042
  3. INSULIN [Suspect]
     Active Substance: INSULIN NOS
     Indication: HYPERGLYCAEMIC HYPEROSMOLAR NONKETOTIC SYNDROME
  4. SODIUM CHLORIDE. [Suspect]
     Active Substance: SODIUM CHLORIDE
     Indication: HYPERGLYCAEMIC HYPEROSMOLAR NONKETOTIC SYNDROME
  5. INSULIN [Suspect]
     Active Substance: INSULIN NOS
     Indication: DIABETIC KETOACIDOSIS
     Dosage: 0.1U/KG/HOUR
     Route: 042
  6. SODIUM CHLORIDE. [Suspect]
     Active Substance: SODIUM CHLORIDE
     Indication: DIABETIC KETOACIDOSIS
     Dosage: ?NKNOWN
     Route: 042

REACTIONS (10)
  - Renal impairment [Recovered/Resolved]
  - Hyperglycaemic hyperosmolar nonketotic syndrome [Unknown]
  - Rhabdomyolysis [Unknown]
  - Hyperthermia malignant [Unknown]
  - Diastolic dysfunction [Unknown]
  - Condition aggravated [Unknown]
  - Hypotension [Recovered/Resolved]
  - Coagulopathy [Unknown]
  - Pancreatitis acute [Unknown]
  - Shock [Unknown]
